FAERS Safety Report 21141537 (Version 1)
Quarter: 2022Q3

REPORT INFORMATION
  Report Type: Spontaneous
  Country: BR (occurrence: BR)
  Receive Date: 20220728
  Receipt Date: 20220728
  Transmission Date: 20221027
  Serious: Yes (Hospitalization)
  Sender: FDA-Public Use
  Company Number: BR-SA-SAC20220725000073

PATIENT
  Age: 79 Year
  Sex: Female

DRUGS (5)
  1. ALLEGRA [Suspect]
     Active Substance: FEXOFENADINE HYDROCHLORIDE
     Dosage: UNK
     Route: 065
     Dates: start: 20220304, end: 20220311
  2. VANCOMYCIN [Concomitant]
     Active Substance: VANCOMYCIN
  3. MEROPENEM [Concomitant]
     Active Substance: MEROPENEM
  4. HYDROCORTISONE [Concomitant]
     Active Substance: HYDROCORTISONE
     Dosage: UNK
  5. METICORTEN [Concomitant]
     Active Substance: PREDNISONE
     Dosage: UNK
     Route: 065

REACTIONS (5)
  - Malaise [Unknown]
  - Petechiae [Unknown]
  - Hyperhidrosis [Unknown]
  - Drug ineffective [Unknown]
  - Speech disorder [Unknown]

NARRATIVE: CASE EVENT DATE: 20220404
